FAERS Safety Report 6963275-0 (Version None)
Quarter: 2010Q3

REPORT INFORMATION
  Report Type: 
  Country: None (occurrence: None)
  Receive Date: 20100902
  Receipt Date: 20100819
  Transmission Date: 20110219
  Serious: No
  Sender: FDA-Public Use
  Company Number: US-JNJFOC-20100807032

PATIENT
  Sex: Female
  Weight: 67.13 kg

DRUGS (1)
  1. FENTANYL CITRATE [Suspect]
     Indication: BACK PAIN
     Route: 062

REACTIONS (2)
  - PRODUCT QUALITY ISSUE [None]
  - WRONG TECHNIQUE IN DRUG USAGE PROCESS [None]
